FAERS Safety Report 7117575-4 (Version None)
Quarter: 2010Q4

REPORT INFORMATION
  Report Type: 
  Country: None (occurrence: None)
  Receive Date: 20101122
  Receipt Date: 20101104
  Transmission Date: 20110411
  Serious: Yes (Hospitalization)
  Sender: FDA-Public Use
  Company Number: ES-AMGEN-ESPSP2010004332

PATIENT

DRUGS (1)
  1. ENBREL [Suspect]
     Indication: RHEUMATOID ARTHRITIS
     Dosage: UNK
     Dates: start: 20091101, end: 20100504

REACTIONS (3)
  - CUTANEOUS VASCULITIS [None]
  - EOSINOPHIL COUNT INCREASED [None]
  - LEUKOCYTOSIS [None]
